FAERS Safety Report 7047996-X (Version None)
Quarter: 2010Q4

REPORT INFORMATION
  Report Type: 
  Country: None (occurrence: None)
  Receive Date: 20101015
  Receipt Date: 20101013
  Transmission Date: 20110411
  Serious: Yes (Other)
  Sender: FDA-Public Use
  Company Number: A0880655A

PATIENT
  Age: 40 Year
  Sex: Male

DRUGS (2)
  1. BUPROPION HYDROCHLORIDE [Suspect]
     Indication: DISTURBANCE IN ATTENTION
     Dosage: 37.5MG SINGLE DOSE
     Route: 048
     Dates: start: 20090801, end: 20090801
  2. NO CONCURRENT MEDICATION [Concomitant]

REACTIONS (1)
  - MUSCLE SPASMS [None]
